FAERS Safety Report 4760069-1 (Version None)
Quarter: 2005Q3

REPORT INFORMATION
  Report Type: 
  Country: None (occurrence: None)
  Receive Date: 20050831
  Receipt Date: 20050317
  Transmission Date: 20060218
  Serious: Yes (Hospitalization, Other)
  Sender: FDA-Public Use
  Company Number: 2005042579

PATIENT
  Age: 54 Year
  Sex: Male
  Weight: 83.9154 kg

DRUGS (4)
  1. BEXTRA [Suspect]
     Indication: ARTHRITIS
     Dosage: 20 MG (10 MG, 2 IN 1 D), ORAL
     Route: 048
     Dates: end: 20050201
  2. ACETYLSALICYLIC ACID SRT [Concomitant]
  3. TOPROL (METOPROLOL) [Concomitant]
  4. LISINOPRIL [Concomitant]

REACTIONS (6)
  - ARTHRITIS [None]
  - BLOOD CHOLESTEROL INCREASED [None]
  - BLOOD POTASSIUM INCREASED [None]
  - CARDIAC DISORDER [None]
  - HEADACHE [None]
  - PNEUMONIA [None]
